FAERS Safety Report 12822620 (Version 1)
Quarter: 2016Q4

REPORT INFORMATION
  Report Type: Spontaneous
  Country: US (occurrence: US)
  Receive Date: 20161007
  Receipt Date: 20161007
  Transmission Date: 20170207
  Serious: Yes (Hospitalization, Other)
  Sender: FDA-Public Use
  Company Number: US-009507513-1609USA013950

PATIENT
  Age: 78 Year
  Sex: Male

DRUGS (1)
  1. PROSCAR [Suspect]
     Active Substance: FINASTERIDE
     Dosage: UNK
     Route: 048

REACTIONS (5)
  - Adverse event [Unknown]
  - Head and neck cancer [Unknown]
  - Gastrostomy [Unknown]
  - Wrong technique in product usage process [Unknown]
  - Product use issue [Unknown]
